FAERS Safety Report 11414249 (Version 2)
Quarter: 2015Q3

REPORT INFORMATION
  Report Type: Report from Study
  Country: BR (occurrence: BR)
  Receive Date: 20150824
  Receipt Date: 20150827
  Transmission Date: 20151125
  Serious: Yes (Death, Life-Threatening, Hospitalization)
  Sender: FDA-Public Use
  Company Number: BR-AMGEN-BRACT2015075475

PATIENT
  Age: 66 Year
  Sex: Female
  Weight: 44.1 kg

DRUGS (4)
  1. CARBOPLATIN. [Concomitant]
     Active Substance: CARBOPLATIN
     Dosage: 450 MG, UNK
     Dates: start: 20150422, end: 20150723
  2. PACLITAXEL. [Concomitant]
     Active Substance: PACLITAXEL
     Dosage: 175 MG, UNK
     Dates: start: 20150422, end: 20150723
  3. HYDROCHLOROTHIAZIDE. [Concomitant]
     Active Substance: HYDROCHLOROTHIAZIDE
     Indication: HYPERTENSION
     Dosage: 160 MG, UNK
     Dates: start: 2014
  4. DARBEPOETIN ALFA [Suspect]
     Active Substance: DARBEPOETIN ALFA
     Indication: ANAEMIA OF MALIGNANT DISEASE
     Dosage: 300 MUG/ML, Q3WK
     Route: 065
     Dates: start: 20150618, end: 20150715

REACTIONS (1)
  - Respiratory failure [Fatal]

NARRATIVE: CASE EVENT DATE: 20150722
